FAERS Safety Report 4776492-5 (Version None)
Quarter: 2005Q3

REPORT INFORMATION
  Report Type: 
  Country: None (occurrence: None)
  Receive Date: 20050915
  Receipt Date: 20050830
  Transmission Date: 20060218
  Serious: Yes (Hospitalization)
  Sender: FDA-Public Use
  Company Number: DSA_26943_2005

PATIENT
  Age: 83 Year
  Sex: Female

DRUGS (6)
  1. ENALAPRIL [Suspect]
     Indication: MYOCARDIAL INFARCTION
     Dosage: 5 MG BID
  2. ENALAPRIL [Suspect]
     Indication: MYOCARDIAL INFARCTION
     Dosage: 5 MG QAM
  3. ENALAPRIL [Suspect]
     Indication: MYOCARDIAL INFARCTION
     Dosage: 5 MG QHS
  4. IMDUR [Suspect]
     Dosage: 30 MG QAM PO
     Route: 048
  5. FUROSEMIDE [Concomitant]
  6. ASPIRIN [Concomitant]

REACTIONS (3)
  - DIZZINESS [None]
  - HYPOTENSION [None]
  - LOSS OF CONSCIOUSNESS [None]
